FAERS Safety Report 5235182-5 (Version None)
Quarter: 2007Q1

REPORT INFORMATION
  Report Type: 
  Country: None (occurrence: None)
  Receive Date: 20070212
  Receipt Date: 20070202
  Transmission Date: 20070707
  Serious: Yes (Death, Hospitalization)
  Sender: FDA-Public Use
  Company Number: FRWYE398802NOV06

PATIENT
  Age: 35 Year
  Sex: Female
  Weight: 85 kg

DRUGS (8)
  1. NOVANTRONE [Suspect]
     Indication: ACUTE MYELOID LEUKAEMIA
     Route: 042
     Dates: start: 20060811, end: 20060813
  2. SOLU-MEDROL [Suspect]
     Indication: ACUTE MYELOID LEUKAEMIA
     Dosage: UNKNOWN
     Route: 042
  3. ZELITREX [Suspect]
     Indication: INFECTION PROPHYLAXIS
     Dosage: UNKNOWN
  4. GEMTUZUMAB OZOGAMICIN [Suspect]
     Indication: ACUTE MYELOID LEUKAEMIA
     Route: 042
     Dates: start: 20060814, end: 20060814
  5. BACTRIM [Suspect]
     Indication: INFECTION PROPHYLAXIS
     Dosage: UNKNOWN
  6. TRIFLUCAN [Suspect]
     Indication: INFECTION PROPHYLAXIS
     Dosage: UNKNOWN
  7. ARACYTINE [Suspect]
     Indication: ACUTE MYELOID LEUKAEMIA
     Route: 042
     Dates: start: 20060811, end: 20060815
  8. DEXAMETHASONE TAB [Suspect]
     Indication: ACUTE MYELOID LEUKAEMIA
     Dosage: UNKNOWN
     Route: 042

REACTIONS (7)
  - BACTERAEMIA [None]
  - CARDIAC ARREST [None]
  - CONDITION AGGRAVATED [None]
  - JAUNDICE [None]
  - LEUKOPENIA [None]
  - NEUTROPENIA [None]
  - THROMBOCYTOPENIA [None]
